FAERS Safety Report 4446704-6 (Version None)
Quarter: 2004Q3

REPORT INFORMATION
  Report Type: 
  Country: None (occurrence: None)
  Receive Date: 20040908
  Receipt Date: 20040824
  Transmission Date: 20050211
  Serious: Yes (Congenital Anomaly)
  Sender: FDA-Public Use
  Company Number: CIP04001845

PATIENT
  Sex: 0

DRUGS (1)
  1. FURADANTIN [Suspect]
     Dosage: ORAL
     Route: 048

REACTIONS (7)
  - AMNIOCENTESIS [None]
  - ANENCEPHALY [None]
  - CONGENITAL ANOMALY [None]
  - DRUG EXPOSURE DURING PREGNANCY [None]
  - ENCEPHALOCELE [None]
  - MATERNAL DRUGS AFFECTING FOETUS [None]
  - SPINA BIFIDA [None]
